FAERS Safety Report 5797410-7 (Version None)
Quarter: 2008Q3

REPORT INFORMATION
  Report Type: 
  Country: None (occurrence: None)
  Receive Date: 20080701
  Receipt Date: 20080508
  Transmission Date: 20090109
  Serious: No
  Sender: FDA-Public Use
  Company Number: US-BOEHRINGER INGELHEIM GMBH, GERMANY-2008-BP-07343BP

PATIENT
  Sex: Male
  Weight: 59 kg

DRUGS (1)
  1. FLOMAX [Suspect]

REACTIONS (1)
  - NASAL CONGESTION [None]
